FAERS Safety Report 5350300-6 (Version None)
Quarter: 2007Q2

REPORT INFORMATION
  Report Type: 
  Country: None (occurrence: None)
  Receive Date: 20070607
  Receipt Date: 20070530
  Transmission Date: 20071010
  Serious: Yes (Other)
  Sender: FDA-Public Use
  Company Number: US-AMGEN-STX225418

PATIENT
  Sex: Female
  Weight: 52.7 kg

DRUGS (7)
  1. ENBREL [Suspect]
     Indication: RHEUMATOID ARTHRITIS
     Route: 058
     Dates: start: 19990101, end: 20070517
  2. METHOTREXATE SODIUM [Concomitant]
     Route: 065
     Dates: start: 19990101, end: 20070517
  3. FOLIC ACID [Concomitant]
     Route: 048
     Dates: start: 19990101
  4. PREMARIN [Concomitant]
     Route: 067
  5. TRILISATE [Concomitant]
     Route: 048
     Dates: start: 19990101
  6. PROVERA [Concomitant]
     Route: 048
  7. FOSAMAX [Concomitant]
     Route: 048

REACTIONS (14)
  - COMPRESSION FRACTURE [None]
  - FATIGUE [None]
  - HYPOAESTHESIA [None]
  - JOINT DISLOCATION [None]
  - JOINT RANGE OF MOTION DECREASED [None]
  - JOINT SWELLING [None]
  - KNEE ARTHROPLASTY [None]
  - NECK PAIN [None]
  - OEDEMA PERIPHERAL [None]
  - OSTEOPOROSIS [None]
  - PERIPHERAL COLDNESS [None]
  - RHEUMATOID ARTHRITIS [None]
  - TONGUE NEOPLASM MALIGNANT STAGE UNSPECIFIED [None]
  - UTERINE PROLAPSE [None]
